FAERS Safety Report 5385931-0 (Version None)
Quarter: 2007Q3

REPORT INFORMATION
  Report Type: 
  Country: None (occurrence: None)
  Receive Date: 20070710
  Receipt Date: 20070627
  Transmission Date: 20080115
  Serious: Yes (Hospitalization)
  Sender: FDA-Public Use
  Company Number: GXKR2007IN05539

PATIENT
  Age: 35 Year
  Sex: Male
  Weight: 65 kg

DRUGS (1)
  1. RIMSTAR  (ETHAMBUTOL DIHYDROCHLORIDE, PYRAZINAMIDE, ISONIAZID, RIFAMPI [Suspect]
     Dosage: 1 DF, QID, ORAL
     Route: 048

REACTIONS (1)
  - PURPURA [None]
